FAERS Safety Report 16622131 (Version 1)
Quarter: 2019Q3

REPORT INFORMATION
  Report Type: Spontaneous
  Country: US (occurrence: US)
  Receive Date: 20190723
  Receipt Date: 20190723
  Transmission Date: 20191004
  Serious: No
  Sender: FDA-Public Use
  Company Number: US-OTSUKA-2019_001680

PATIENT
  Sex: Female

DRUGS (8)
  1. ARIPIPRAZOLE. [Suspect]
     Active Substance: ARIPIPRAZOLE
     Dosage: 10 MG FOR SEVEN DAY
     Route: 065
  2. REXULTI [Suspect]
     Active Substance: BREXPIPRAZOLE
     Dosage: 4.5 MG, UNK
     Route: 065
  3. REXULTI [Suspect]
     Active Substance: BREXPIPRAZOLE
     Indication: DEPRESSION
     Dosage: 2 MG, UNK
     Route: 065
  4. ARIPIPRAZOLE. [Suspect]
     Active Substance: ARIPIPRAZOLE
     Dosage: 5 MG FOR SEVEN DAY
     Route: 065
     Dates: end: 20181204
  5. ARIPIPRAZOLE. [Suspect]
     Active Substance: ARIPIPRAZOLE
     Dosage: 20 MG FOR SEVEN DAY
     Route: 065
  6. ABILIFY [Suspect]
     Active Substance: ARIPIPRAZOLE
     Indication: PRODUCT USED FOR UNKNOWN INDICATION
     Dosage: UNK
     Route: 065
  7. REXULTI [Suspect]
     Active Substance: BREXPIPRAZOLE
     Dosage: 4 MG, UNK
     Route: 065
  8. ARIPIPRAZOLE. [Suspect]
     Active Substance: ARIPIPRAZOLE
     Indication: SCHIZOAFFECTIVE DISORDER
     Dosage: 30 MG, UNK
     Route: 065

REACTIONS (9)
  - Psychotic symptom [Not Recovered/Not Resolved]
  - Dysacusis [Not Recovered/Not Resolved]
  - Adverse event [Recovered/Resolved]
  - Incorrect dose administered [Unknown]
  - Stress [Unknown]
  - Extrapyramidal disorder [Recovered/Resolved]
  - Overdose [Unknown]
  - Tardive dyskinesia [Recovering/Resolving]
  - Therapeutic response changed [Unknown]

NARRATIVE: CASE EVENT DATE: 201809
